FAERS Safety Report 11220874 (Version 1)
Quarter: 2015Q2

REPORT INFORMATION
  Report Type: Spontaneous
  Country: US (occurrence: None)
  Receive Date: 20150625
  Receipt Date: 20150625
  Transmission Date: 20150821
  Serious: Yes (Hospitalization)
  Sender: FDA-Public Use
  Company Number: None

PATIENT
  Age: 48 Year
  Sex: Female
  Weight: 103.42 kg

DRUGS (10)
  1. JANUVIA [Suspect]
     Active Substance: SITAGLIPTIN PHOSPHATE
     Indication: TYPE 2 DIABETES MELLITUS
     Dosage: 1 PILL EVERY DAY BY MOUTH
     Route: 048
     Dates: start: 20140623, end: 20150601
  2. LANTUS [Concomitant]
     Active Substance: INSULIN GLARGINE
  3. TRIAMTERENE AND HYDROCHLOROTHIAZIDE [Concomitant]
     Active Substance: HYDROCHLOROTHIAZIDE\TRIAMTERENE
  4. SERTRALINE [Concomitant]
     Active Substance: SERTRALINE HYDROCHLORIDE
  5. ALLOPURINOL. [Concomitant]
     Active Substance: ALLOPURINOL
  6. INVOKANA [Concomitant]
     Active Substance: CANAGLIFLOZIN
  7. LISINOPRIL. [Concomitant]
     Active Substance: LISINOPRIL
  8. ESTRADIOL. [Concomitant]
     Active Substance: ESTRADIOL
  9. TRILIPIX [Concomitant]
     Active Substance: FENOFIBRIC ACID
  10. VESICARE [Concomitant]
     Active Substance: SOLIFENACIN SUCCINATE

REACTIONS (6)
  - Chest discomfort [None]
  - Hallucination [None]
  - Shock [None]
  - Pancreatitis [None]
  - Dysphonia [None]
  - Dehydration [None]

NARRATIVE: CASE EVENT DATE: 20150601
